FAERS Safety Report 25197980 (Version 6)
Quarter: 2025Q4

REPORT INFORMATION
  Report Type: Spontaneous
  Country: CA (occurrence: CA)
  Receive Date: 20250415
  Receipt Date: 20251017
  Transmission Date: 20260117
  Serious: Yes (Other)
  Sender: CELLTRION
  Company Number: CA-PFIZER INC-202500065482

PATIENT

DRUGS (8)
  1. INFLIXIMAB [Suspect]
     Active Substance: INFLIXIMAB
     Indication: Ankylosing spondylitis
     Dosage: 7.5 MG/KG
     Route: 042
  2. INFLIXIMAB [Suspect]
     Active Substance: INFLIXIMAB
     Dosage: 7.5 MG/KG
     Route: 042
  3. INFLIXIMAB [Suspect]
     Active Substance: INFLIXIMAB
     Dosage: 600 MG
     Route: 042
  4. INFLECTRA [Suspect]
     Active Substance: INFLIXIMAB-DYYB
     Indication: Ankylosing spondylitis
     Dosage: 7.5 MG/KG, EVERY 6 WEEKS
     Route: 042
     Dates: start: 20220616
  5. INFLECTRA [Suspect]
     Active Substance: INFLIXIMAB-DYYB
     Dosage: 600 MG, (7.5MG/KG) EVERY 6 WEEKS
     Route: 042
     Dates: start: 20250206
  6. INFLECTRA [Suspect]
     Active Substance: INFLIXIMAB-DYYB
     Dosage: 7.5 MG/KG, EVERY 6 WEEKS
     Route: 042
  7. INFLECTRA [Suspect]
     Active Substance: INFLIXIMAB-DYYB
     Dosage: 7.5 MG/KG, EVERY 6 WEEKS
     Route: 042
  8. CELEBREX [Concomitant]
     Active Substance: CELECOXIB
     Dosage: 1 DF (UNKNOWN DOSE)
     Dates: start: 2020

REACTIONS (6)
  - Nephrolithiasis [Not Recovered/Not Resolved]
  - Renal abscess [Not Recovered/Not Resolved]
  - Blister [Not Recovered/Not Resolved]
  - Weight decreased [Unknown]
  - Depression [Recovering/Resolving]
  - Intentional product use issue [Unknown]

NARRATIVE: CASE EVENT DATE: 20240101
